FAERS Safety Report 4650457-6 (Version None)
Quarter: 2005Q2

REPORT INFORMATION
  Report Type: 
  Country: None (occurrence: None)
  Receive Date: 20050429
  Receipt Date: 20050420
  Transmission Date: 20051028
  Serious: Yes (Other)
  Sender: FDA-Public Use
  Company Number: 2005-04-1534

PATIENT
  Sex: Male

DRUGS (1)
  1. INTRON A [Suspect]
     Indication: NON-HODGKIN'S LYMPHOMA
     Dosage: 3 MIU TIW SUBCUTANEOUS
     Route: 058

REACTIONS (10)
  - AGEUSIA [None]
  - ANOSMIA [None]
  - ANTI-THYROID ANTIBODY POSITIVE [None]
  - AUTOIMMUNE DISORDER [None]
  - EXANTHEM [None]
  - FATIGUE [None]
  - HYPOTHYROIDISM [None]
  - INFLUENZA LIKE ILLNESS [None]
  - LICHENOID KERATOSIS [None]
  - THYROID ATROPHY [None]
